FAERS Safety Report 19945063 (Version 3)
Quarter: 2021Q4

REPORT INFORMATION
  Report Type: Report from Study
  Country: IT (occurrence: IT)
  Receive Date: 20211011
  Receipt Date: 20211123
  Transmission Date: 20220304
  Serious: Yes (Life-Threatening)
  Sender: FDA-Public Use
  Company Number: IT-JNJFOC-20211015663

PATIENT
  Age: 50 Year
  Sex: Female

DRUGS (12)
  1. IBRUTINIB [Suspect]
     Active Substance: IBRUTINIB
     Indication: Diffuse large B-cell lymphoma
     Route: 048
     Dates: start: 20210830, end: 20210928
  2. IBRUTINIB [Suspect]
     Active Substance: IBRUTINIB
     Dosage: 4 CYCLE RI-CHOP
     Route: 048
     Dates: end: 20211025
  3. RITUXIMAB [Concomitant]
     Active Substance: RITUXIMAB
     Indication: Diffuse large B-cell lymphoma
     Route: 042
     Dates: start: 20210809, end: 20210920
  4. RITUXIMAB [Concomitant]
     Active Substance: RITUXIMAB
     Dosage: NUMBER OF DOSAGES PER CYCLE 1?4 CYCLE RI-CHOP
     Route: 042
     Dates: end: 20211011
  5. CYCLOPHOSPHAMIDE [Concomitant]
     Active Substance: CYCLOPHOSPHAMIDE
     Indication: Diffuse large B-cell lymphoma
     Route: 042
     Dates: start: 20210809, end: 20210920
  6. CYCLOPHOSPHAMIDE [Concomitant]
     Active Substance: CYCLOPHOSPHAMIDE
     Dosage: 4 CYCLE RI-CHOP
     Route: 042
     Dates: end: 20211011
  7. VINCRISTINE [Concomitant]
     Active Substance: VINCRISTINE
     Indication: Diffuse large B-cell lymphoma
     Route: 042
     Dates: start: 20210809, end: 20210920
  8. VINCRISTINE [Concomitant]
     Active Substance: VINCRISTINE
     Dosage: 4 CYCLE RI-CHOP
     Route: 042
     Dates: end: 20211011
  9. DOXORUBICIN [Concomitant]
     Active Substance: DOXORUBICIN
     Indication: Diffuse large B-cell lymphoma
     Route: 042
     Dates: start: 20210809, end: 20210920
  10. DOXORUBICIN [Concomitant]
     Active Substance: DOXORUBICIN
     Dosage: 4 CYCLE RI-CHOP
     Route: 042
     Dates: end: 20211011
  11. PREDNISONE [Concomitant]
     Active Substance: PREDNISONE
     Indication: Diffuse large B-cell lymphoma
     Route: 048
     Dates: start: 20210809, end: 20210925
  12. PREDNISONE [Concomitant]
     Active Substance: PREDNISONE
     Dosage: 4 CYCLE RI-CHOP
     Route: 048
     Dates: end: 20211015

REACTIONS (1)
  - Neutropenia [Not Recovered/Not Resolved]

NARRATIVE: CASE EVENT DATE: 20210929
